FAERS Safety Report 6866467-4 (Version None)
Quarter: 2010Q2

REPORT INFORMATION
  Report Type: 
  Country: None (occurrence: None)
  Receive Date: 20100601
  Receipt Date: 20100216
  Transmission Date: 20101027
  Serious: Yes (Other)
  Sender: FDA-Public Use
  Company Number: WAES 0911USA01454

PATIENT

DRUGS (1)
  1. EMEND [Suspect]
     Indication: BREAST CANCER
     Dosage: IV
     Route: 042

REACTIONS (1)
  - INFUSION SITE PAIN [None]
